FAERS Safety Report 6155860-3 (Version None)
Quarter: 2009Q2

REPORT INFORMATION
  Report Type: 
  Country: None (occurrence: None)
  Receive Date: 20090415
  Receipt Date: 20090407
  Transmission Date: 20091009
  Serious: Yes (Life-Threatening, Hospitalization)
  Sender: FDA-Public Use
  Company Number: ES-AMGEN-US339712

PATIENT
  Age: 56 Year
  Sex: Male

DRUGS (2)
  1. ENBREL [Suspect]
     Indication: ANKYLOSING SPONDYLITIS
     Route: 058
  2. INDOMETHACIN [Concomitant]
     Indication: ANKYLOSING SPONDYLITIS
     Dates: start: 19920101

REACTIONS (5)
  - ARTHRITIS BACTERIAL [None]
  - DEVICE RELATED INFECTION [None]
  - MULTI-ORGAN FAILURE [None]
  - RETROPERITONEAL ABSCESS [None]
  - STAPHYLOCOCCAL SEPSIS [None]
